FAERS Safety Report 17068029 (Version 1)
Quarter: 2019Q4

REPORT INFORMATION
  Report Type: Spontaneous
  Country: US (occurrence: US)
  Receive Date: 20191123
  Receipt Date: 20191123
  Transmission Date: 20200122
  Serious: Yes (Life-Threatening, Disabling)
  Sender: FDA-Public Use
  Company Number: US-TEVA-2019-US-1142085

PATIENT
  Sex: Male

DRUGS (2)
  1. AMIODARONE HYDROCHLORIDE TABLETS TEVA [Suspect]
     Active Substance: AMIODARONE HYDROCHLORIDE
     Indication: ATRIAL FIBRILLATION
     Route: 048
  2. AMIODARONE HYDROCHLORIDE. [Suspect]
     Active Substance: AMIODARONE HYDROCHLORIDE
     Indication: ATRIAL FIBRILLATION
     Route: 048

REACTIONS (10)
  - Impaired driving ability [Unknown]
  - Off label use [Unknown]
  - Coordination abnormal [Unknown]
  - Dizziness [Unknown]
  - Reading disorder [Unknown]
  - Loss of personal independence in daily activities [Unknown]
  - Blindness [Unknown]
  - Headache [Unknown]
  - Optic ischaemic neuropathy [Not Recovered/Not Resolved]
  - Impaired work ability [Unknown]

NARRATIVE: CASE EVENT DATE: 201506
